FAERS Safety Report 25859384 (Version 1)
Quarter: 2025Q3

REPORT INFORMATION
  Report Type: Spontaneous
  Country: US (occurrence: US)
  Receive Date: 20250929
  Receipt Date: 20250929
  Transmission Date: 20251020
  Serious: Yes (Disabling, Other)
  Sender: AMGEN
  Company Number: US-AMGEN-USASP2025189895

PATIENT
  Age: 77 Year
  Sex: Male

DRUGS (1)
  1. REPATHA [Suspect]
     Active Substance: EVOLOCUMAB
     Indication: Blood cholesterol abnormal
     Dosage: 140 MILLIGRAM, Q2WK
     Route: 058

REACTIONS (8)
  - Femoral nerve injury [Recovering/Resolving]
  - Exostosis [Recovering/Resolving]
  - Joint instability [Recovering/Resolving]
  - Arthropathy [Recovering/Resolving]
  - Activities of daily living decreased [Recovering/Resolving]
  - Device use error [Unknown]
  - Device difficult to use [Unknown]
  - Drug dose omission by device [Unknown]

NARRATIVE: CASE EVENT DATE: 20250729
